FAERS Safety Report 12211195 (Version 1)
Quarter: 2016Q1

REPORT INFORMATION
  Report Type: Spontaneous
  Country: US (occurrence: US)
  Receive Date: 20160325
  Receipt Date: 20160325
  Transmission Date: 20160526
  Serious: Yes (Other)
  Sender: FDA-Public Use
  Company Number: US-PFIZER INC-2016171110

PATIENT
  Sex: Male

DRUGS (5)
  1. WELLBUTRIN XL [Concomitant]
     Active Substance: BUPROPION HYDROCHLORIDE
     Indication: DEPRESSION
  2. AMBIEN CR [Concomitant]
     Active Substance: ZOLPIDEM TARTRATE
     Indication: SOMNOLENCE
     Dosage: 12.5 MG, UNK
     Route: 048
     Dates: start: 20060508
  3. ST. JOHNS WORT [Concomitant]
     Active Substance: HYPERICUM PERFORATUM
     Indication: PHYTOTHERAPY
     Dosage: UNK
     Route: 048
  4. PROPANOLOL HCL [Suspect]
     Active Substance: PROPRANOLOL HYDROCHLORIDE
     Indication: HYPERTENSION
     Dosage: 20 MG, UNK
     Route: 048
     Dates: start: 20060508
  5. WELLBUTRIN XL [Concomitant]
     Active Substance: BUPROPION HYDROCHLORIDE
     Indication: ANXIETY
     Dosage: 150 MG, UNK
     Route: 048
     Dates: start: 20060508

REACTIONS (5)
  - Homicide [Unknown]
  - Mental impairment [Unknown]
  - Psychotic disorder [Unknown]
  - Somnambulism [Unknown]
  - Amnesia [Unknown]
